FAERS Safety Report 16405014 (Version 2)
Quarter: 2019Q2

REPORT INFORMATION
  Report Type: Spontaneous
  Country: FR (occurrence: FR)
  Receive Date: 20190607
  Receipt Date: 20190621
  Transmission Date: 20190711
  Serious: Yes (Death, Congenital Anomaly, Other)
  Sender: FDA-Public Use
  Company Number: FR-ASTRAZENECA-2019SE83158

PATIENT
  Sex: Female
  Weight: .1 kg

DRUGS (5)
  1. PLAQUENIL [Suspect]
     Active Substance: HYDROXYCHLOROQUINE SULFATE
     Indication: SJOGREN^S SYNDROME
     Route: 064
     Dates: start: 20180204, end: 20180718
  2. DIFFU K [Suspect]
     Active Substance: POTASSIUM CHLORIDE
     Indication: MINERAL SUPPLEMENTATION
     Route: 064
     Dates: start: 20180204, end: 20180718
  3. CORTANCYL [Suspect]
     Active Substance: PREDNISONE
     Indication: SJOGREN^S SYNDROME
     Route: 064
     Dates: start: 20180204, end: 20180718
  4. ESOMEPRAZOLE MAGNESIUM. [Suspect]
     Active Substance: ESOMEPRAZOLE MAGNESIUM
     Indication: PROPHYLAXIS
     Route: 064
     Dates: start: 20180204, end: 20180718
  5. IMUREL [AZATHIOPRINE] [Suspect]
     Active Substance: AZATHIOPRINE
     Indication: SJOGREN^S SYNDROME
     Route: 064
     Dates: start: 20180204, end: 20180718

REACTIONS (7)
  - Congenital bowing of long bones [Fatal]
  - Foetal growth restriction [Fatal]
  - Premature baby [Fatal]
  - Premature separation of placenta [Fatal]
  - Congenital osteodystrophy [Fatal]
  - Maternal exposure during pregnancy [Fatal]
  - Right-to-left cardiac shunt [Fatal]

NARRATIVE: CASE EVENT DATE: 20180523
